FAERS Safety Report 8939826 (Version 1)
Quarter: 2012Q4

REPORT INFORMATION
  Report Type: 
  Country: US (occurrence: US)
  Receive Date: 20121121
  Receipt Date: 20121121
  Transmission Date: 20130627
  Serious: Yes (Death)
  Sender: FDA-Public Use
  Company Number: US-ASTELLAS-CID000000002114336

PATIENT
  Age: 54 Year
  Sex: Male
  Weight: 75.36 kg

DRUGS (1)
  1. TARCEVA [Suspect]
     Indication: MALIGNANT RESPIRATORY TRACT NEOPLASM
     Route: 048
     Dates: end: 20071231

REACTIONS (1)
  - Disease progression [Fatal]
